FAERS Safety Report 20707848 (Version 1)
Quarter: 2022Q2

REPORT INFORMATION
  Report Type: Spontaneous
  Country: US (occurrence: None)
  Receive Date: 20220414
  Receipt Date: 20220414
  Transmission Date: 20220721
  Serious: No
  Sender: FDA-Public Use
  Company Number: 2022A129530

PATIENT
  Sex: Female
  Weight: 74.4 kg

DRUGS (3)
  1. LYNPARZA [Suspect]
     Active Substance: OLAPARIB
     Indication: Breast cancer female
     Route: 048
  2. LUPRON [Concomitant]
     Active Substance: LEUPROLIDE ACETATE
     Route: 065
  3. LETROZOLE [Concomitant]
     Active Substance: LETROZOLE
     Route: 065

REACTIONS (6)
  - Abdominal distension [Unknown]
  - Dry mouth [Unknown]
  - Feeling abnormal [Unknown]
  - Chest discomfort [Unknown]
  - Decreased appetite [Unknown]
  - Asthenia [Unknown]
